FAERS Safety Report 16105153 (Version 1)
Quarter: 2019Q2

REPORT INFORMATION
  Report Type: Spontaneous
  Country: US (occurrence: US)
  Receive Date: 20190321
  Receipt Date: 20190321
  Transmission Date: 20190711
  Serious: Yes (Hospitalization)
  Sender: FDA-Public Use
  Company Number: None

PATIENT
  Sex: Male

DRUGS (8)
  1. PREDNISONE. [Concomitant]
     Active Substance: PREDNISONE
  2. LISINOPRIL. [Concomitant]
     Active Substance: LISINOPRIL
  3. KLORCON 10 [Concomitant]
  4. FUROSEMIDE. [Concomitant]
     Active Substance: FUROSEMIDE
  5. AMIODARONE [Concomitant]
     Active Substance: AMIODARONE
  6. ABIRATERONE 250 MG  TAB [Suspect]
     Active Substance: ABIRATERONE ACETATE
     Indication: PROSTATE CANCER
     Route: 048
     Dates: start: 20170818
  7. VITAMIN D NOS [Concomitant]
     Active Substance: VITAMIN D NOS
  8. CALCIUM OYSTER SHELL ORAL [Concomitant]

REACTIONS (1)
  - Peripheral swelling [None]
